FAERS Safety Report 5656686-7 (Version None)
Quarter: 2008Q1

REPORT INFORMATION
  Report Type: 
  Country: None (occurrence: None)
  Receive Date: 20080306
  Receipt Date: 20080306
  Transmission Date: 20080703
  Serious: Yes (Other)
  Sender: FDA-Public Use
  Company Number: None

PATIENT
  Age: 50 Year

DRUGS (7)
  1. METFORMIN HCL [Suspect]
     Indication: DIABETES MELLITUS
     Dosage: 2 TABS DAILY PO
     Route: 048
     Dates: start: 20070412, end: 20071217
  2. METOPROLOL TARTRATE [Concomitant]
  3. RAMIPRIL [Concomitant]
  4. LASIX [Concomitant]
  5. ASPIRIN [Concomitant]
  6. VYTORIN [Concomitant]
  7. CLOPIDROGEL [Concomitant]

REACTIONS (4)
  - AGEUSIA [None]
  - ARTHRALGIA [None]
  - GASTROINTESTINAL DISORDER [None]
  - OEDEMA [None]
